FAERS Safety Report 9053966 (Version 12)
Quarter: 2014Q1

REPORT INFORMATION
  Report Type: Report from Study
  Country: BR (occurrence: BR)
  Receive Date: 20130208
  Receipt Date: 20140124
  Transmission Date: 20141002
  Serious: Yes (Other)
  Sender: FDA-Public Use
  Company Number: PHHY2013BR011678

PATIENT
  Age: 65 Year
  Sex: Male
  Weight: 53 kg

DRUGS (12)
  1. FORASEQ [Suspect]
     Indication: EMPHYSEMA
     Dosage: 1 DF, QD
     Route: 055
  2. FORASEQ [Suspect]
     Dosage: UNK UKN, BID
     Route: 055
  3. FORASEQ [Suspect]
     Dosage: 2 DF, BID
     Route: 055
     Dates: start: 2012
  4. FORASEQ [Suspect]
     Dosage: UNK
  5. FORASEQ [Suspect]
     Dosage: UNK
  6. FORASEQ [Suspect]
     Dosage: UNK UKN, BID
  7. FORASEQ [Suspect]
     Dosage: UNK
  8. ONBREZ [Suspect]
     Indication: CHRONIC OBSTRUCTIVE PULMONARY DISEASE
     Dosage: 1 DF, QD
     Route: 055
  9. ONBREZ [Suspect]
     Indication: EMPHYSEMA
     Dosage: 150 UG, UNK
  10. ONBREZ [Suspect]
     Indication: OFF LABEL USE
     Dosage: 1 DF, QD
     Route: 055
     Dates: start: 20131107
  11. ROSUVASTATIN CALCIUM [Concomitant]
     Indication: BLOOD CHOLESTEROL INCREASED
     Dosage: 1 DF, DAILY
     Route: 048
  12. SIMVASTATIN [Concomitant]
     Dosage: 1 DF, DAILY
     Route: 048

REACTIONS (19)
  - Prostate cancer [Recovering/Resolving]
  - Meniere^s disease [Recovered/Resolved]
  - Deafness [Not Recovered/Not Resolved]
  - Ear disorder [Recovered/Resolved]
  - Dizziness [Recovered/Resolved]
  - Laryngeal disorder [Not Recovered/Not Resolved]
  - Lung infection [Unknown]
  - Pyrexia [Unknown]
  - Rhinitis [Not Recovered/Not Resolved]
  - Emphysema [Unknown]
  - Dyspnoea [Recovered/Resolved]
  - Pulmonary function test decreased [Not Recovered/Not Resolved]
  - Thyroid disorder [Recovering/Resolving]
  - Hypothyroidism [Unknown]
  - Asthenia [Recovering/Resolving]
  - Malaise [Recovering/Resolving]
  - Thyroid function test abnormal [Recovering/Resolving]
  - Drug administration error [Unknown]
  - Device malfunction [Unknown]
